FAERS Safety Report 7625039-4 (Version None)
Quarter: 2011Q3

REPORT INFORMATION
  Report Type: 
  Country: None (occurrence: None)
  Receive Date: 20110721
  Receipt Date: 20110711
  Transmission Date: 20111222
  Serious: No
  Sender: FDA-Public Use
  Company Number: US-BIOGENIDEC-2011BI025862

PATIENT
  Age: 50 Year
  Sex: Female

DRUGS (3)
  1. TYSABRI [Suspect]
     Indication: MULTIPLE SCLEROSIS
     Route: 042
     Dates: start: 20070103, end: 20110301
  2. TYSABRI [Suspect]
     Route: 042
     Dates: start: 20110601
  3. AVONEX [Concomitant]
     Indication: MULTIPLE SCLEROSIS
     Route: 030
     Dates: start: 20021017

REACTIONS (5)
  - FATIGUE [None]
  - GAIT DISTURBANCE [None]
  - COGNITIVE DISORDER [None]
  - HYPOAESTHESIA [None]
  - VISUAL IMPAIRMENT [None]
